FAERS Safety Report 9000848 (Version 1)
Quarter: 2012Q4

REPORT INFORMATION
  Report Type: Spontaneous
  Country: NL (occurrence: None)
  Receive Date: 20121226
  Receipt Date: 20121226
  Transmission Date: 20130627
  Serious: Yes (Other)
  Sender: FDA-Public Use
  Company Number: NL-1195710

PATIENT
  Sex: Female

DRUGS (1)
  1. VITAMINS [Suspect]
     Indication: RETINAL DEGENERATION
     Route: 048

REACTIONS (1)
  - Visual acuity reduced [None]
